FAERS Safety Report 8151342-8 (Version None)
Quarter: 2012Q1

REPORT INFORMATION
  Report Type: 
  Country: None (occurrence: None)
  Receive Date: 20120220
  Receipt Date: 20120209
  Transmission Date: 20120608
  Serious: Yes (Other)
  Sender: FDA-Public Use
  Company Number: JP-ASTRAZENECA-2012SE10612

PATIENT
  Age: 18 Year
  Sex: Female

DRUGS (6)
  1. SEROQUEL [Suspect]
     Route: 048
     Dates: start: 20111222, end: 20111228
  2. SEROQUEL [Suspect]
     Indication: SEDATION
     Route: 048
     Dates: start: 20111209, end: 20111215
  3. SEROQUEL [Suspect]
     Route: 048
     Dates: start: 20120118, end: 20120121
  4. SEROQUEL [Suspect]
     Route: 048
     Dates: start: 20111216, end: 20111221
  5. SEROQUEL [Suspect]
     Route: 048
     Dates: start: 20111229, end: 20120117
  6. SERTRALINE HYDROCHLORIDE [Concomitant]
     Route: 048
     Dates: start: 20111209

REACTIONS (2)
  - OFF LABEL USE [None]
  - CONVULSION [None]
